FAERS Safety Report 21960475 (Version 5)
Quarter: 2023Q2

REPORT INFORMATION
  Report Type: Report from Study
  Country: US (occurrence: US)
  Receive Date: 20230207
  Receipt Date: 20230609
  Transmission Date: 20230721
  Serious: Yes (Hospitalization, Other)
  Sender: FDA-Public Use
  Company Number: US-REGENERON PHARMACEUTICALS, INC.-2022-159233

PATIENT
  Age: 51 Year
  Sex: Female

DRUGS (30)
  1. CEMIPLIMAB [Suspect]
     Active Substance: CEMIPLIMAB
     Indication: Ovarian cancer
     Dosage: 350 MG, DOSE ESCALATION
     Route: 042
     Dates: start: 20230110, end: 20230110
  2. VITAMINS [Concomitant]
     Active Substance: VITAMINS
     Indication: Supplementation therapy
     Dosage: 1 TABLET QD
     Route: 048
     Dates: start: 20211101
  3. ZINC [Concomitant]
     Active Substance: ZINC
     Indication: Supplementation therapy
     Dosage: 140 MG, QD
     Route: 048
     Dates: start: 20220101, end: 20230203
  4. VITAMIN B COMPLEX [Concomitant]
     Active Substance: CYANOCOBALAMIN\DEXPANTHENOL\NIACINAMIDE\PYRIDOXINE HYDROCHLORIDE\RIBOFLAVIN 5^-PHOSPHATE SODIUM\THIA
     Indication: Supplementation therapy
     Dosage: 1 TABLET, QD (INJECTABLE)
     Route: 050
     Dates: start: 20220617, end: 20230203
  5. MELATONIN [Concomitant]
     Active Substance: MELATONIN
     Indication: Insomnia
     Dosage: 10 MG, QD
     Route: 048
     Dates: start: 20200701, end: 20230203
  6. VITAMIN D3 [Concomitant]
     Active Substance: CHOLECALCIFEROL
     Indication: Supplementation therapy
     Dosage: 125 UG, QD
     Route: 048
     Dates: start: 20211101, end: 20230203
  7. DIPHENHYDRAMINE [Concomitant]
     Active Substance: DIPHENHYDRAMINE
     Indication: Premedication
     Dosage: 50 MG, AS NECESSARY
     Route: 048
     Dates: start: 20221230
  8. DIPHENHYDRAMINE [Concomitant]
     Active Substance: DIPHENHYDRAMINE
     Indication: Pruritus
     Dosage: 25 MG, AS NECESSARY
     Route: 048
     Dates: start: 20230121, end: 20230303
  9. PREDNISONE [Concomitant]
     Active Substance: PREDNISONE
     Indication: Premedication
     Dosage: 50 MG, AS NECESSARY
     Route: 048
     Dates: start: 20221230, end: 20230102
  10. MAGNESIUM CITRATE [Concomitant]
     Active Substance: MAGNESIUM CITRATE
     Indication: Constipation
     Dosage: 600 MG, QD
     Route: 048
     Dates: start: 20220102
  11. DOCONEXENT\ICOSAPENT [Concomitant]
     Active Substance: DOCONEXENT\ICOSAPENT
     Indication: Supplementation therapy
     Dosage: 2 CAPSULE, BID
     Route: 048
     Dates: start: 20221212, end: 20230203
  12. CARBOXYMETHYLCELLULOSE SODIUM [Concomitant]
     Active Substance: CARBOXYMETHYLCELLULOSE SODIUM
     Indication: Dry eye
     Dosage: 1 DROP, AS NECESSARY
     Route: 047
     Dates: start: 20221215
  13. CARBOXYMETHYLCELLULOSE SODIUM [Concomitant]
     Active Substance: CARBOXYMETHYLCELLULOSE SODIUM
     Indication: Conjunctivitis
     Dosage: 1 DROP, AS NECESSARY
     Route: 047
     Dates: start: 20221215
  14. POLYETHYLENE GLYCOL 3350 [Concomitant]
     Active Substance: POLYETHYLENE GLYCOL 3350
     Indication: Constipation
     Dosage: 17 G, ONCE AS NECESSARY
     Route: 048
     Dates: start: 20221229
  15. CETIRIZINE HYDROCHLORIDE [Concomitant]
     Active Substance: CETIRIZINE HYDROCHLORIDE
     Indication: Pruritus
     Dosage: 10 MG, QD
     Route: 048
     Dates: start: 20230123
  16. TYLENOL [Concomitant]
     Active Substance: ACETAMINOPHEN
     Indication: Cytokine release syndrome
     Dosage: 500 MG, AS NECESSARY
     Route: 048
     Dates: start: 20221223, end: 20221223
  17. TYLENOL [Concomitant]
     Active Substance: ACETAMINOPHEN
     Indication: Pyrexia
     Dosage: 650 MG, AS NECESSARY
     Route: 048
     Dates: start: 20230111, end: 20230111
  18. DILAUDID [Concomitant]
     Active Substance: HYDROMORPHONE HYDROCHLORIDE
     Indication: Abdominal pain
     Dosage: 2 MG, 1 OR 2 TABLETS Q6H PRN
     Route: 048
     Dates: start: 20230125
  19. COLACE [Concomitant]
     Active Substance: DOCUSATE SODIUM
     Indication: Constipation
     Dosage: 100 MG, BID
     Route: 048
     Dates: start: 20230125
  20. SENNOSIDES A AND B [Concomitant]
     Active Substance: SENNOSIDES A AND B
     Indication: Constipation
     Dosage: 8.6 MG, 2 TABS AT BEDTIME AS NECESSARY
     Route: 048
     Dates: start: 20230125, end: 20230206
  21. LACTULOSE [Concomitant]
     Active Substance: LACTULOSE
     Indication: Constipation
     Dosage: 15 ML, 30ML AT BEDTIME AS NECESSARY
     Route: 048
     Dates: start: 20230125
  22. ACETAMINOPHEN [Concomitant]
     Active Substance: ACETAMINOPHEN
     Indication: Infusion related reaction
     Dosage: 650 MG,Q6H
     Route: 048
     Dates: start: 20221221, end: 20221222
  23. ACETAMINOPHEN [Concomitant]
     Active Substance: ACETAMINOPHEN
     Indication: Cytokine release syndrome
     Dosage: 650 MG,Q6H PRN
     Route: 042
     Dates: start: 20221221, end: 20221221
  24. ACETAMINOPHEN [Concomitant]
     Active Substance: ACETAMINOPHEN
     Indication: Paraesthesia
     Dosage: 625 MG,Q6H
     Route: 048
     Dates: start: 20230118
  25. ACETAMINOPHEN [Concomitant]
     Active Substance: ACETAMINOPHEN
     Indication: Abdominal pain
     Dosage: 650 MG,Q6H
     Route: 042
     Dates: start: 20221214, end: 20221215
  26. ACETAMINOPHEN [Concomitant]
     Active Substance: ACETAMINOPHEN
     Dosage: 650 MG,Q6H
     Route: 042
     Dates: start: 20221222, end: 20221222
  27. HYDROMORPHONE [Concomitant]
     Active Substance: HYDROMORPHONE
     Indication: Paraesthesia
     Dosage: 0.5 MG, SINGLE
     Route: 042
     Dates: start: 20230125, end: 20230125
  28. TRIAMCINOLONE [Concomitant]
     Active Substance: TRIAMCINOLONE
     Indication: Pruritus
     Dosage: 0.1 %, BID
     Route: 061
     Dates: start: 20230126, end: 20230303
  29. CLOBETASOL [Concomitant]
     Active Substance: CLOBETASOL
     Indication: Pruritus
     Dosage: 0.05 %, BID
     Route: 061
     Dates: start: 20230126, end: 20230303
  30. PREGABALIN [Concomitant]
     Active Substance: PREGABALIN
     Indication: Paraesthesia
     Dosage: 50 MG, Q8H
     Route: 048
     Dates: start: 20230123, end: 20230131

REACTIONS (2)
  - Neuropathy peripheral [Not Recovered/Not Resolved]
  - Cytokine release syndrome [Recovered/Resolved]

NARRATIVE: CASE EVENT DATE: 20221214
